FAERS Safety Report 5637774-8 (Version None)
Quarter: 2008Q1

REPORT INFORMATION
  Report Type: 
  Country: None (occurrence: None)
  Receive Date: 20080219
  Receipt Date: 20080208
  Transmission Date: 20080703
  Serious: Yes (Hospitalization)
  Sender: FDA-Public Use
  Company Number: PHO-2008-014

PATIENT
  Age: 60 Year
  Sex: Male

DRUGS (5)
  1. PHOTOFRIN [Suspect]
     Indication: EPIGLOTTIC CARCINOMA
     Dosage: 2 MG/KG, 1 DOSE, IV
     Route: 042
     Dates: start: 20080125
  2. ZOLOFT [Concomitant]
  3. OMEPRAZOLE [Concomitant]
  4. DIVALPROEX SODIUM [Concomitant]
  5. TAMSULOSIN HCL [Concomitant]

REACTIONS (3)
  - LOBAR PNEUMONIA [None]
  - PHARYNGOLARYNGEAL PAIN [None]
  - WEIGHT DECREASED [None]
